FAERS Safety Report 13603208 (Version 2)
Quarter: 2017Q3

REPORT INFORMATION
  Report Type: Spontaneous
  Country: US (occurrence: US)
  Receive Date: 20170601
  Receipt Date: 20170725
  Transmission Date: 20171127
  Serious: No
  Sender: FDA-Public Use
  Company Number: US-ALLERGAN-1718711US

PATIENT
  Age: 23 Year
  Sex: Male
  Weight: 90.25 kg

DRUGS (3)
  1. LINZESS [Suspect]
     Active Substance: LINACLOTIDE
     Dosage: 290 ?G, QD
     Route: 048
  2. OMEPRAZOLE. [Concomitant]
     Active Substance: OMEPRAZOLE
     Indication: PRODUCT USED FOR UNKNOWN INDICATION
     Dosage: 20 MG, QD
     Route: 048
  3. LINZESS [Suspect]
     Active Substance: LINACLOTIDE
     Indication: GASTROINTESTINAL MOTILITY DISORDER
     Dosage: 145 ?G, UNK
     Route: 048
     Dates: start: 20170518

REACTIONS (14)
  - Fatigue [Unknown]
  - Dyspepsia [Unknown]
  - Sleep apnoea syndrome [Unknown]
  - Vomiting [Unknown]
  - Regurgitation [Unknown]
  - Gastrooesophageal reflux disease [Unknown]
  - Diverticulum gastric [Unknown]
  - Therapeutic response decreased [Unknown]
  - Hiatus hernia [Unknown]
  - Gastritis erosive [Unknown]
  - Gastritis [Unknown]
  - Middle insomnia [Unknown]
  - Inappropriate schedule of drug administration [Unknown]
  - Constipation [Unknown]
